FAERS Safety Report 7833016-3 (Version None)
Quarter: 2011Q4

REPORT INFORMATION
  Report Type: 
  Country: None (occurrence: None)
  Receive Date: 20111024
  Receipt Date: 20111010
  Transmission Date: 20120403
  Serious: Yes (Hospitalization)
  Sender: FDA-Public Use
  Company Number: US-ELI_LILLY_AND_COMPANY-US201110002036

PATIENT
  Sex: Female

DRUGS (11)
  1. FORTEO [Suspect]
     Indication: OSTEOPOROSIS
     Dosage: 20 UG, QD
     Dates: start: 20110921, end: 20110922
  2. LOVAZA [Concomitant]
     Dosage: 1000 MG, QD
  3. VITAMIN B-12 [Concomitant]
     Dosage: UNK, QD
     Route: 060
  4. VITAMIN D [Concomitant]
     Dosage: UNK, QD
  5. FORTEO [Suspect]
     Dosage: 20 UG, QD
     Dates: start: 20111007
  6. OMEPRAZOLE [Concomitant]
     Indication: GASTRIC DISORDER
     Dosage: UNK, QD
  7. ADVAIR DISKUS 100/50 [Concomitant]
     Dosage: UNK, PRN
  8. GABAPENTIN [Concomitant]
     Dosage: 300 MG, BID
  9. CALTRATE +D [Concomitant]
  10. OXYCODONE HCL AND ACETAMINOPHEN [Concomitant]
     Dosage: 5.325 MG, BID
  11. OXYCODONE HCL [Concomitant]

REACTIONS (2)
  - LOSS OF CONSCIOUSNESS [None]
  - CARDIAC PACEMAKER INSERTION [None]
